FAERS Safety Report 9171816 (Version 3)
Quarter: 2013Q2

REPORT INFORMATION
  Report Type: Report from Study
  Country: GB (occurrence: GB)
  Receive Date: 20130319
  Receipt Date: 20130401
  Transmission Date: 20140414
  Serious: Yes (Life-Threatening, Hospitalization)
  Sender: FDA-Public Use
  Company Number: GB-PFIZER INC-2013003842

PATIENT
  Age: 65 Year
  Sex: Female
  Weight: 64.6 kg

DRUGS (17)
  1. CYCLOPHOSPHAMIDE [Suspect]
     Indication: B-CELL LYMPHOMA
     Dosage: UNK
  2. DOXORUBICIN [Suspect]
     Indication: B-CELL LYMPHOMA
     Dosage: UNK
     Route: 065
  3. RITUXIMAB [Suspect]
     Indication: B-CELL LYMPHOMA
     Dosage: 667.5 MG, EVERY 3 WEEKS
     Route: 042
     Dates: start: 20121017
  4. RITUXIMAB [Suspect]
  5. VINCRISTINE [Suspect]
     Indication: B-CELL LYMPHOMA
     Dosage: UNK
     Route: 065
  6. PREDNISONE [Suspect]
     Indication: B-CELL LYMPHOMA
     Dosage: UNK
     Route: 065
  7. DOSULEPIN [Concomitant]
     Indication: DEPRESSION
  8. ZOPICLONE [Concomitant]
     Indication: PROPHYLAXIS
  9. PENICILLIN V [Concomitant]
     Indication: SPLENECTOMY
     Dosage: UNK
     Dates: start: 20120323
  10. VITAMIN D [Concomitant]
  11. FYBOGEL [Concomitant]
     Indication: CONSTIPATION
     Dosage: UNK
     Dates: start: 201210
  12. SENNA [Concomitant]
     Indication: CONSTIPATION
     Dosage: UNK
     Dates: start: 201210
  13. LAXIDO [Concomitant]
     Indication: CONSTIPATION
     Dosage: UNK
     Dates: start: 20121026
  14. RANITIDINE [Concomitant]
     Indication: DYSPEPSIA
     Dosage: UNK
     Dates: start: 20121026, end: 20130130
  15. OMEPRAZOLE [Concomitant]
     Indication: DYSPEPSIA
     Dosage: UNK
     Dates: start: 20130131
  16. GAVISCON [Concomitant]
     Indication: DYSPEPSIA
     Dosage: UNK
     Dates: start: 20130129, end: 20130206
  17. FLUCONAZOLE [Concomitant]
     Indication: OESOPHAGEAL DISCOMFORT
     Dosage: UNK
     Dates: start: 20130131, end: 20130206

REACTIONS (3)
  - Neutropenic sepsis [Recovered/Resolved]
  - Febrile neutropenia [Recovered/Resolved]
  - Pulmonary embolism [Not Recovered/Not Resolved]
